FAERS Safety Report 8123651-X (Version None)
Quarter: 2012Q1

REPORT INFORMATION
  Report Type: 
  Country: None (occurrence: None)
  Receive Date: 20120208
  Receipt Date: 20120206
  Transmission Date: 20120608
  Serious: Yes (Hospitalization, Other)
  Sender: FDA-Public Use
  Company Number: PHEH2005US014205

PATIENT
  Sex: Female
  Weight: 70.295 kg

DRUGS (96)
  1. FASLODEX [Concomitant]
     Dosage: 250 MG, QMO
     Route: 042
     Dates: start: 20040201, end: 20050301
  2. XANAX [Concomitant]
     Dosage: 0.25 MG, UNK
  3. AZITHROMYCIN [Concomitant]
  4. IODOQUINOL [Concomitant]
  5. ONDANSETRON [Concomitant]
  6. PROZAC [Concomitant]
  7. HORMONES [Concomitant]
  8. NAVELBINE [Concomitant]
  9. DOXORUBICIN HCL [Concomitant]
  10. KYTRIL [Concomitant]
  11. ARIMIDEX [Suspect]
  12. LIPITOR [Concomitant]
     Dosage: 40 MG, UNK
  13. ZOLOFT [Concomitant]
     Dosage: 50 MG, UNK
  14. FOLIC ACID [Concomitant]
     Dosage: 1 MG, UNK
  15. GEMZAR [Concomitant]
     Dosage: UNK
     Dates: start: 20050501
  16. POTASSIUM CHLORIDE [Concomitant]
  17. FUROSEMIDE [Concomitant]
  18. CITALOPRAM HYDROBROMIDE [Concomitant]
  19. BUPROPION HCL [Concomitant]
  20. FLUCONAZOLE [Concomitant]
  21. TERCONAZOLE [Concomitant]
  22. FEMARA [Concomitant]
     Dosage: 2.5 MG, BID
     Route: 048
     Dates: start: 20030901, end: 20040201
  23. TAMOXIFEN CITRATE [Concomitant]
     Indication: BREAST CANCER
     Dosage: 10 MG, BID
     Route: 048
     Dates: start: 20020601, end: 20030901
  24. ATENOLOL [Concomitant]
     Dosage: 50 MG, QD
     Route: 048
  25. AMBIEN [Concomitant]
     Dosage: 10 MG, UNK
  26. IRON [Concomitant]
  27. TAXOTERE [Concomitant]
  28. NEULASTA [Concomitant]
  29. ONDANSETRON HCL [Concomitant]
  30. ACTONEL [Concomitant]
  31. WELLBUTRIN XL [Concomitant]
  32. GABAPENTIN [Concomitant]
  33. AVELOX [Concomitant]
  34. METOCLOPRAMIDE [Concomitant]
  35. MUPIROCIN [Concomitant]
  36. ZOCOR [Concomitant]
  37. ALENDRONATE SODIUM [Suspect]
     Indication: HYPERCALCAEMIA
     Route: 042
  38. LOTREL [Concomitant]
     Dosage: 5/10 MG
  39. HYDROCODONE [Concomitant]
     Dosage: UNK, UNK
  40. XELODA [Concomitant]
  41. HYDROCORTISONE WITH LIDOCAINE HYDROCHLORIDE [Concomitant]
  42. OXYCODONE HCL AND ACETAMINOPHEN [Concomitant]
  43. HYDROMORPHONE HYDROCHLORIDE [Concomitant]
  44. AROMASIN [Concomitant]
  45. EFFEXOR XR [Concomitant]
  46. MORPHINE SULFATE [Concomitant]
  47. MIRTAZAPINE [Concomitant]
  48. METHADONE [Concomitant]
  49. CLOTRIMAZOLE [Concomitant]
  50. BIAFINE [Concomitant]
  51. ZOMETA [Suspect]
     Indication: BREAST CANCER METASTATIC
     Dosage: 4 MG, QMO
     Route: 042
     Dates: start: 20030901, end: 20050203
  52. NEXIUM [Concomitant]
     Dosage: 40 MG, UNK
  53. CALCIMATE PLUS [Concomitant]
  54. SILVER SULFADIAZINE [Concomitant]
  55. NYSTATIN [Concomitant]
  56. NAPROXEN [Concomitant]
  57. CELEBREX [Concomitant]
  58. CHOLINE MAGNESIUM TRISALICYLATE [Concomitant]
  59. CIALIS [Concomitant]
  60. ZOVIRAX [Concomitant]
  61. FOSAMAX [Concomitant]
     Dosage: 20 MG, QD
     Route: 048
  62. MIRALAX [Concomitant]
     Dosage: UNK
  63. ALPRAZOLAM [Concomitant]
  64. MELOXICAM [Concomitant]
  65. OMEPRAZOLE [Concomitant]
  66. LYRICA [Concomitant]
  67. SULFAMETHOXAZOLE + TRIMETHOPRIM [Concomitant]
  68. EVISTA [Concomitant]
  69. LETROZOLE [Concomitant]
  70. PROTONIX [Concomitant]
  71. MULTI-VITAMINS [Concomitant]
  72. COMPAZINE [Concomitant]
  73. DEXAMETHASONE [Concomitant]
  74. PROPOXYPHENE NAPSYLATE W/ ACETAMINOPHEN [Concomitant]
  75. LEVAQUIN [Concomitant]
  76. METRONIDAZOLE [Concomitant]
  77. FENTANYL CITRATE [Concomitant]
  78. LEXAPRO [Concomitant]
  79. MEGESTROL ACETATE [Concomitant]
  80. GEMCITABINE [Concomitant]
  81. ETODOLAC [Concomitant]
  82. METHYLPREDNISOLONE [Concomitant]
  83. ZEBETA [Concomitant]
     Dosage: UNK
  84. PROVOCHOLINE [Concomitant]
     Dosage: UNK
  85. STOOL SOFTENER [Concomitant]
     Dosage: UNK
  86. GLYCOLAX [Concomitant]
  87. SIMVASTATIN [Concomitant]
  88. PREDNISONE [Concomitant]
  89. CEPHALEXIN [Concomitant]
  90. BETAMETHASONE DIPROPIONATE W/CLOTRIMAZOLE [Concomitant]
  91. NEURONTIN [Concomitant]
  92. MOBIC [Concomitant]
  93. CIPROFLOXACIN [Concomitant]
  94. PROCHLORPERAZINE [Concomitant]
  95. COMPRO [Concomitant]
  96. TEMAZEPAM [Concomitant]

REACTIONS (100)
  - RECTAL HAEMORRHAGE [None]
  - OSTEONECROSIS OF JAW [None]
  - HAEMORRHOIDS [None]
  - TOOTH LOSS [None]
  - IMPAIRED HEALING [None]
  - OESOPHAGEAL CANDIDIASIS [None]
  - PHYSICAL DISABILITY [None]
  - SCAR [None]
  - OEDEMA PERIPHERAL [None]
  - POSTURE ABNORMAL [None]
  - MEMORY IMPAIRMENT [None]
  - RECTOCELE [None]
  - PURULENT DISCHARGE [None]
  - PLANTAR FASCIITIS [None]
  - ECZEMA [None]
  - COMPRESSION FRACTURE [None]
  - ERUCTATION [None]
  - HYPOAESTHESIA ORAL [None]
  - TOOTHACHE [None]
  - ARTHRALGIA [None]
  - DYSPNOEA [None]
  - BONE PAIN [None]
  - MITRAL VALVE PROLAPSE [None]
  - LUMBAR RADICULOPATHY [None]
  - URINARY RETENTION [None]
  - CYSTOCELE [None]
  - CELLULITIS [None]
  - PAIN IN EXTREMITY [None]
  - DYSPLASTIC NAEVUS [None]
  - BRONCHITIS [None]
  - WHITE BLOOD CELL COUNT INCREASED [None]
  - BONE DISORDER [None]
  - PAIN [None]
  - ORAL CAVITY FISTULA [None]
  - NEURALGIA [None]
  - ANXIETY [None]
  - HYPOAESTHESIA [None]
  - MUSCULAR WEAKNESS [None]
  - INTERVERTEBRAL DISC PROTRUSION [None]
  - MICTURITION URGENCY [None]
  - STAPHYLOCOCCAL INFECTION [None]
  - INGROWING NAIL [None]
  - LICHENOID KERATOSIS [None]
  - DIZZINESS [None]
  - BALANCE DISORDER [None]
  - ORAL DISORDER [None]
  - INJURY [None]
  - METASTASES TO BONE [None]
  - EXOSTOSIS [None]
  - SPINAL OSTEOARTHRITIS [None]
  - WALKING DISABILITY [None]
  - EYE PAIN [None]
  - ANAEMIA [None]
  - RECTAL FISSURE [None]
  - HAEMANGIOMA [None]
  - EATING DISORDER [None]
  - GINGIVAL PAIN [None]
  - OSTEOARTHRITIS [None]
  - WOUND INFECTION STAPHYLOCOCCAL [None]
  - BACK PAIN [None]
  - CONSTIPATION [None]
  - URINARY INCONTINENCE [None]
  - SEBORRHOEIC KERATOSIS [None]
  - FACE INJURY [None]
  - CHRONIC OBSTRUCTIVE PULMONARY DISEASE [None]
  - RADICULITIS [None]
  - BURSITIS [None]
  - OSTEITIS [None]
  - ORAL MUCOSAL EXFOLIATION [None]
  - EMOTIONAL DISTRESS [None]
  - SEROMA [None]
  - AREFLEXIA [None]
  - FAECAL INCONTINENCE [None]
  - ANGIOFIBROMA [None]
  - FEAR [None]
  - TINNITUS [None]
  - PAIN IN JAW [None]
  - PYREXIA [None]
  - NUCLEAR MAGNETIC RESONANCE IMAGING ABNORMAL [None]
  - PARAESTHESIA [None]
  - RECTAL ABSCESS [None]
  - PROCTALGIA [None]
  - VARICOSE VEIN [None]
  - CATARACT NUCLEAR [None]
  - FATIGUE [None]
  - ANGER [None]
  - ASTHMA [None]
  - PERONEAL NERVE PALSY [None]
  - FALL [None]
  - NIGHT SWEATS [None]
  - TOOTH INFECTION [None]
  - DRY EYE [None]
  - URINARY TRACT INFECTION [None]
  - EXCESSIVE GRANULATION TISSUE [None]
  - MALIGNANT MELANOMA [None]
  - MAJOR DEPRESSION [None]
  - PERIPHERAL ARTERIAL OCCLUSIVE DISEASE [None]
  - TENDON DISORDER [None]
  - DECREASED APPETITE [None]
  - HAND FRACTURE [None]
